FAERS Safety Report 12671607 (Version 2)
Quarter: 2016Q3

REPORT INFORMATION
  Report Type: Spontaneous
  Country: US (occurrence: US)
  Receive Date: 20160822
  Receipt Date: 20160901
  Transmission Date: 20161109
  Serious: Yes (Other)
  Sender: FDA-Public Use
  Company Number: US-GE HEALTHCARE MEDICAL DIAGNOSTICS-OSCN-PR-1608L-0110

PATIENT
  Age: 55 Year
  Sex: Female

DRUGS (7)
  1. MULTIHANCE [Suspect]
     Active Substance: GADOBENATE DIMEGLUMINE
     Indication: HEPATIC CYST
     Route: 042
     Dates: start: 2007, end: 2007
  2. MULTIHANCE [Suspect]
     Active Substance: GADOBENATE DIMEGLUMINE
     Indication: RENAL CYST
  3. MULTIHANCE [Suspect]
     Active Substance: GADOBENATE DIMEGLUMINE
     Indication: DIAGNOSTIC PROCEDURE
  4. OMNISCAN [Suspect]
     Active Substance: GADODIAMIDE
     Indication: MULTIPLE SCLEROSIS
     Route: 042
     Dates: start: 1994, end: 1994
  5. OMNISCAN [Suspect]
     Active Substance: GADODIAMIDE
     Indication: CONCUSSION
     Route: 042
     Dates: start: 1995, end: 1995
  6. OMNISCAN [Suspect]
     Active Substance: GADODIAMIDE
     Indication: DIAGNOSTIC PROCEDURE
     Route: 042
     Dates: start: 1996, end: 1996
  7. OMNISCAN [Suspect]
     Active Substance: GADODIAMIDE
     Route: 042
     Dates: start: 2006, end: 2006

REACTIONS (8)
  - Medication residue present [Not Recovered/Not Resolved]
  - Pain in extremity [Not Recovered/Not Resolved]
  - Peripheral swelling [Not Recovered/Not Resolved]
  - Feeling hot [Not Recovered/Not Resolved]
  - Toxicity to various agents [Not Recovered/Not Resolved]
  - Skin hypertrophy [Not Recovered/Not Resolved]
  - Pain [Not Recovered/Not Resolved]
  - Erythema [Not Recovered/Not Resolved]
